FAERS Safety Report 26191546 (Version 1)
Quarter: 2025Q4

REPORT INFORMATION
  Report Type: Spontaneous
  Country: US (occurrence: None)
  Receive Date: 20251223
  Receipt Date: 20251223
  Transmission Date: 20260118
  Serious: Yes (Life-Threatening, Other)
  Sender: FDA-CTU
  Company Number: None

PATIENT
  Age: 34 Year
  Sex: Female

DRUGS (1)
  1. NEXPLANON [Suspect]
     Active Substance: ETONOGESTREL

REACTIONS (5)
  - Hypoaesthesia [None]
  - Pain in extremity [None]
  - Palpitations [None]
  - Suicidal ideation [None]
  - Medical device removal [None]

NARRATIVE: CASE EVENT DATE: 20251126
